FAERS Safety Report 4384219-4 (Version None)
Quarter: 2004Q2

REPORT INFORMATION
  Report Type: 
  Country: None (occurrence: None)
  Receive Date: 20040614
  Receipt Date: 20040217
  Transmission Date: 20050107
  Serious: Yes (Other)
  Sender: FDA-Public Use
  Company Number: 2004195012US

PATIENT
  Age: 81 Year
  Sex: Female
  Weight: 66.7 kg

DRUGS (4)
  1. ZYVOX [Suspect]
     Indication: INFECTION
     Dosage: IV
     Route: 042
     Dates: start: 20031208, end: 20031219
  2. ZYVOX [Suspect]
     Indication: INFECTION
     Dosage: 600 MG, BID, ORAL
     Route: 048
     Dates: start: 20031219, end: 20040112
  3. INDERAL [Concomitant]
  4. ACCUPRIL [Concomitant]

REACTIONS (16)
  - ABDOMINAL PAIN UPPER [None]
  - ANAEMIA [None]
  - ANOREXIA [None]
  - BLOOD PRESSURE INCREASED [None]
  - CHILLS [None]
  - COLITIS [None]
  - DIARRHOEA [None]
  - FEELING ABNORMAL [None]
  - GASTRIC HAEMORRHAGE [None]
  - HEADACHE [None]
  - JAUNDICE [None]
  - NAUSEA [None]
  - TEMPERATURE REGULATION DISORDER [None]
  - TREMOR [None]
  - VOMITING [None]
  - WEIGHT DECREASED [None]
